FAERS Safety Report 4566552-6 (Version None)
Quarter: 2005Q1

REPORT INFORMATION
  Report Type: 
  Country: None (occurrence: None)
  Receive Date: 20050126
  Receipt Date: 20050126
  Transmission Date: 20050727
  Serious: No
  Sender: FDA-Public Use
  Company Number: None

PATIENT
  Sex: Female
  Weight: 43.9989 kg

DRUGS (2)
  1. TEGRETOL [Suspect]
     Indication: CONVULSION
     Dosage: 200 MG TID
  2. TEGRETOL [Suspect]
     Indication: CONVULSION
     Dosage: 100 MG TID

REACTIONS (1)
  - NO ADVERSE DRUG EFFECT [None]
